FAERS Safety Report 14880901 (Version 1)
Quarter: 2018Q2

REPORT INFORMATION
  Report Type: Spontaneous
  Country: US (occurrence: US)
  Receive Date: 20180425
  Receipt Date: 20180425
  Transmission Date: 20180711
  Serious: Yes (Other)
  Sender: FDA-Public Use
  Company Number: None

PATIENT
  Age: 58 Year
  Sex: Female
  Weight: 96.3 kg

DRUGS (4)
  1. BIO FREEZE [Concomitant]
     Active Substance: MENTHOL
  2. MOIST HEAT PAD [Concomitant]
  3. TENS UNIT [Concomitant]
  4. OXYCODONE/ACTAMINOPHEN 10-325 TB [Suspect]
     Active Substance: ACETAMINOPHEN\OXYCODONE HYDROCHLORIDE
     Dosage: ?          QUANTITY:1 DF DOSAGE FORM;?
     Route: 048

REACTIONS (13)
  - Product taste abnormal [None]
  - Foreign body in respiratory tract [None]
  - Nausea [None]
  - Decreased appetite [None]
  - Abdominal discomfort [None]
  - Dizziness [None]
  - Pharyngeal oedema [None]
  - Headache [None]
  - Constipation [None]
  - Asthenia [None]
  - Dysgeusia [None]
  - Throat irritation [None]
  - Tremor [None]

NARRATIVE: CASE EVENT DATE: 20180318
